FAERS Safety Report 16458567 (Version 1)
Quarter: 2019Q2

REPORT INFORMATION
  Report Type: Spontaneous
  Country: US (occurrence: US)
  Receive Date: 20190620
  Receipt Date: 20190620
  Transmission Date: 20190711
  Serious: No
  Sender: FDA-Public Use
  Company Number: US-THERAPEUTICSMD-2019TMD00485

PATIENT
  Sex: Female
  Weight: 70.3 kg

DRUGS (4)
  1. IMVEXXY [Suspect]
     Active Substance: ESTRADIOL
     Indication: VULVOVAGINAL DRYNESS
     Dosage: 4 ?G, 2X/WEEK
     Route: 067
     Dates: start: 201903
  2. IMVEXXY [Suspect]
     Active Substance: ESTRADIOL
     Indication: VULVOVAGINAL DRYNESS
     Dosage: 10 ?G, 1X/DAY AT BEDTIME
     Route: 067
     Dates: start: 201901, end: 2019
  3. IMVEXXY [Suspect]
     Active Substance: ESTRADIOL
     Indication: URINARY TRACT INFECTION
  4. IMVEXXY [Suspect]
     Active Substance: ESTRADIOL
     Indication: URINARY TRACT INFECTION
     Dosage: 10 ?G, 2X/WEEK AT BEDTIME
     Route: 067
     Dates: start: 2019, end: 201903

REACTIONS (3)
  - Off label use [Not Recovered/Not Resolved]
  - Hot flush [Recovering/Resolving]
  - Nasopharyngitis [Not Recovered/Not Resolved]

NARRATIVE: CASE EVENT DATE: 2019
